FAERS Safety Report 10540632 (Version 2)
Quarter: 2014Q4

REPORT INFORMATION
  Report Type: Spontaneous
  Country: IT (occurrence: IT)
  Receive Date: 20141024
  Receipt Date: 20141024
  Transmission Date: 20150529
  Serious: Yes (Hospitalization)
  Sender: FDA-Public Use
  Company Number: IT-TEVA-478357ISR

PATIENT
  Age: 65 Year
  Sex: Male

DRUGS (6)
  1. FULCROSUPRA [Concomitant]
     Active Substance: FENOFIBRATE
     Indication: PRODUCT USED FOR UNKNOWN INDICATION
     Route: 048
     Dates: start: 20140301
  2. CARDIOASPIRIN - 100 MG COMPRESSE GASTRORESISTENTI [Concomitant]
     Active Substance: ASPIRIN
     Indication: PRODUCT USED FOR UNKNOWN INDICATION
     Dosage: 100 MG GASTRO-RESISTANT TABLET
  3. FLUCONAZOLE. [Suspect]
     Active Substance: FLUCONAZOLE
     Indication: ONYCHOMYCOSIS
     Dosage: 150 MG WEEKLY
     Route: 048
     Dates: start: 20140216, end: 20140301
  4. BOSIX - 500 MG COMPRESSE RIVESTITE - GENETIC [Suspect]
     Active Substance: CIPROFLOXACIN HYDROCHLORIDE
     Indication: CYSTITIS
     Dosage: 1 G DAILY
     Route: 048
     Dates: start: 20140312, end: 20140318
  5. ALAPRIL - 20 MG COMPRESSE [Concomitant]
     Indication: PRODUCT USED FOR UNKNOWN INDICATION
     Dosage: 20 MG
  6. OMEPRAZEN [Concomitant]
     Active Substance: OMEPRAZOLE
     Indication: PRODUCT USED FOR UNKNOWN INDICATION
     Dosage: 20 MG
     Route: 048

REACTIONS (4)
  - Pruritus [Recovering/Resolving]
  - Rash generalised [Recovering/Resolving]
  - Genital erythema [Recovering/Resolving]
  - Oral mucosa erosion [Unknown]

NARRATIVE: CASE EVENT DATE: 20140316
